FAERS Safety Report 10699523 (Version 2)
Quarter: 2015Q1

REPORT INFORMATION
  Report Type: Spontaneous
  Country: AU (occurrence: AU)
  Receive Date: 20150109
  Receipt Date: 20150109
  Transmission Date: 20150721
  Serious: Yes (Hospitalization)
  Sender: FDA-Public Use
  Company Number: AU-ACCORD-027986

PATIENT
  Age: 23 Year
  Sex: Male

DRUGS (2)
  1. QUETIAPINE [Suspect]
     Active Substance: QUETIAPINE
     Indication: BIPOLAR DISORDER
  2. MIRTAZAPINE. [Suspect]
     Active Substance: MIRTAZAPINE
     Indication: BIPOLAR DISORDER

REACTIONS (7)
  - Toxic encephalopathy [Recovering/Resolving]
  - Compartment syndrome [Recovering/Resolving]
  - Rhabdomyolysis [Recovering/Resolving]
  - Liver function test abnormal [Recovering/Resolving]
  - Coagulopathy [Recovering/Resolving]
  - Renal impairment [Recovering/Resolving]
  - Pneumonia aspiration [Recovering/Resolving]
